FAERS Safety Report 25855196 (Version 1)
Quarter: 2025Q3

REPORT INFORMATION
  Report Type: Spontaneous
  Country: US (occurrence: US)
  Receive Date: 20250927
  Receipt Date: 20250927
  Transmission Date: 20251021
  Serious: Yes (Hospitalization, Other)
  Sender: SHILPA MEDICARE
  Company Number: US-KOANAAP-SML-US-2025-00457

PATIENT
  Age: 31 Year
  Sex: Male

DRUGS (2)
  1. AZACITIDINE [Suspect]
     Active Substance: AZACITIDINE
     Indication: Hepatosplenic T-cell lymphoma
  2. ROMIDEPSIN [Suspect]
     Active Substance: ROMIDEPSIN
     Indication: Hepatosplenic T-cell lymphoma

REACTIONS (11)
  - Drug intolerance [Unknown]
  - Generalised oedema [Unknown]
  - Coagulopathy [Unknown]
  - Hepatic encephalopathy [Unknown]
  - Hyperbilirubinaemia [Unknown]
  - Haemolytic anaemia [Unknown]
  - Leukocytosis [Unknown]
  - Drug ineffective [Unknown]
  - Asthenia [Unknown]
  - Cytopenia [Unknown]
  - Haemorrhage intracranial [Unknown]
